FAERS Safety Report 8894132 (Version 2)
Quarter: 2012Q4

REPORT INFORMATION
  Report Type: 
  Country: US (occurrence: US)
  Receive Date: 20121108
  Receipt Date: 20121115
  Transmission Date: 20130627
  Serious: Yes (Death)
  Sender: FDA-Public Use
  Company Number: US-PFIZER INC-2012276222

PATIENT
  Age: 86 Year
  Sex: Male

DRUGS (1)
  1. REVATIO [Suspect]
     Indication: PRIMARY PULMONARY HYPERTENSION
     Dosage: 40 mg, 3x/day

REACTIONS (2)
  - Death [Fatal]
  - Off label use [Unknown]
